FAERS Safety Report 9365363 (Version 3)
Quarter: 2013Q3

REPORT INFORMATION
  Report Type: Spontaneous
  Country: US (occurrence: US)
  Receive Date: 20130625
  Receipt Date: 20130730
  Transmission Date: 20140515
  Serious: No
  Sender: FDA-Public Use
  Company Number: US-009507513-1306USA010151

PATIENT
  Age: 36 Year
  Sex: Female
  Weight: 69.39 kg

DRUGS (1)
  1. NEXPLANON [Suspect]
     Dosage: 1 DF, UNK
     Route: 059
     Dates: start: 20130612

REACTIONS (4)
  - Device difficult to use [Unknown]
  - Device kink [Unknown]
  - Device deployment issue [Unknown]
  - No adverse event [Unknown]
